FAERS Safety Report 19814651 (Version 2)
Quarter: 2021Q3

REPORT INFORMATION
  Report Type: Spontaneous
  Country: US (occurrence: US)
  Receive Date: 20210910
  Receipt Date: 20210914
  Transmission Date: 20211014
  Serious: Yes (Other)
  Sender: FDA-Public Use
  Company Number: US-PFIZER INC-202101133736

PATIENT
  Age: 54 Year
  Sex: Female
  Weight: 60.78 kg

DRUGS (1)
  1. CHANTIX [Suspect]
     Active Substance: VARENICLINE TARTRATE
     Indication: SMOKING CESSATION THERAPY
     Dosage: 1 DF, 2X/DAY

REACTIONS (5)
  - Nausea [Unknown]
  - Headache [Unknown]
  - Stress [Unknown]
  - Weight decreased [Recovering/Resolving]
  - Vomiting [Unknown]
